FAERS Safety Report 6369192-1 (Version None)
Quarter: 2009Q3

REPORT INFORMATION
  Report Type: 
  Country: None (occurrence: None)
  Receive Date: 20090831
  Receipt Date: 20090820
  Transmission Date: 20100115
  Serious: Yes (Other)
  Sender: FDA-Public Use
  Company Number: AEJPN200900244

PATIENT

DRUGS (2)
  1. IGIVNEX [Suspect]
     Indication: KAWASAKI'S DISEASE
  2. ASPIRIN [Suspect]
     Indication: KAWASAKI'S DISEASE
     Dosage: 10 MG/KG;QD

REACTIONS (1)
  - NEUTROPENIA [None]
